FAERS Safety Report 6732639-2 (Version None)
Quarter: 2010Q2

REPORT INFORMATION
  Report Type: 
  Country: None (occurrence: None)
  Receive Date: 20100517
  Receipt Date: 20100503
  Transmission Date: 20101027
  Serious: Yes (Disabling, Other)
  Sender: FDA-Public Use
  Company Number: 1-22473804

PATIENT
  Age: 71 Year
  Sex: Male

DRUGS (2)
  1. CIPROFLOXACIN [Suspect]
     Indication: LOCALISED INFECTION
     Dosage: 400 MG, TWICE DAILY, INTRAVENOUS
     Route: 042
  2. CLINDAMYCIN [Concomitant]

REACTIONS (8)
  - BURNING SENSATION [None]
  - ERYTHEMA [None]
  - GANGRENE [None]
  - HAEMORRHAGE [None]
  - LEG AMPUTATION [None]
  - PRURITUS [None]
  - PURPURA [None]
  - VASCULITIS [None]
